FAERS Safety Report 24327499 (Version 1)
Quarter: 2024Q3

REPORT INFORMATION
  Report Type: Spontaneous
  Country: US (occurrence: US)
  Receive Date: 20240917
  Receipt Date: 20240917
  Transmission Date: 20241017
  Serious: Yes (Other)
  Sender: SANOFI AVENTIS
  Company Number: US-SANOFI-02209051

PATIENT
  Age: 82 Year
  Sex: Male

DRUGS (1)
  1. LANTUS SOLOSTAR [Suspect]
     Active Substance: INSULIN GLARGINE
     Indication: Type 2 diabetes mellitus
     Dosage: 32 IU, BID
     Dates: start: 1990

REACTIONS (4)
  - Cataract [Unknown]
  - Visual impairment [Unknown]
  - Inappropriate schedule of product administration [Unknown]
  - Product storage error [Unknown]

NARRATIVE: CASE EVENT DATE: 19900101
